FAERS Safety Report 15459315 (Version 1)
Quarter: 2018Q4

REPORT INFORMATION
  Report Type: Spontaneous
  Country: US (occurrence: US)
  Receive Date: 20181003
  Receipt Date: 20181003
  Transmission Date: 20190204
  Serious: No
  Sender: FDA-Public Use
  Company Number: US-ASTRAZENECA-2018SF12551

PATIENT
  Sex: Female
  Weight: 50.8 kg

DRUGS (3)
  1. DILTIAZEM. [Concomitant]
     Active Substance: DILTIAZEM
     Indication: BLOOD PRESSURE MEASUREMENT
     Dosage: UNKNOWN
     Route: 048
  2. VENTOLIN [Concomitant]
     Active Substance: ALBUTEROL SULFATE
     Indication: INHALATION THERAPY
     Dosage: AS REQUIRED
     Route: 055
  3. BEVESPI AEROSPHERE [Suspect]
     Active Substance: FORMOTEROL FUMARATE\GLYCOPYRROLATE
     Indication: CHRONIC OBSTRUCTIVE PULMONARY DISEASE
     Dosage: 9/4.8 MCG, 2 PUFFS, TWICE A DAY
     Route: 055
     Dates: start: 2017

REACTIONS (8)
  - Dizziness [Unknown]
  - Urinary tract infection [Unknown]
  - Cataract [Unknown]
  - Fatigue [Unknown]
  - Weight increased [Unknown]
  - Somnolence [Unknown]
  - Weight decreased [Unknown]
  - Product dose omission [Unknown]
